FAERS Safety Report 5580488-3 (Version None)
Quarter: 2007Q4

REPORT INFORMATION
  Report Type: 
  Country: None (occurrence: None)
  Receive Date: 20071231
  Receipt Date: 20071231
  Transmission Date: 20080405
  Serious: Yes (Hospitalization)
  Sender: FDA-Public Use
  Company Number: None

PATIENT
  Sex: Female
  Weight: 56.4 kg

DRUGS (5)
  1. CYCLOPHOSPHAMIDE [Suspect]
     Dosage: 3720 MG
  2. DOXORUBICIN HYDROCHLORIDE [Suspect]
     Dosage: 268 MG
  3. PREDNISONE TAB [Suspect]
     Dosage: 2000 MG
  4. RITUXIMAB (MOAB C2BP ANTI CD20, CHIMERIC) [Suspect]
     Dosage: 2130 MG
  5. VINCRISTINE SULFATE [Suspect]
     Dosage: 8 MG

REACTIONS (3)
  - BACTERIAL INFECTION [None]
  - FEBRILE NEUTROPENIA [None]
  - PLATELET COUNT DECREASED [None]
